FAERS Safety Report 9803705 (Version 2)
Quarter: 2014Q1

REPORT INFORMATION
  Report Type: Spontaneous
  Country: US (occurrence: US)
  Receive Date: 20140108
  Receipt Date: 20140113
  Transmission Date: 20141002
  Serious: Yes (Other)
  Sender: FDA-Public Use
  Company Number: US-DRREDDYS-USA/USA/14/0036930

PATIENT
  Age: 15 Year
  Sex: Female

DRUGS (2)
  1. ZENATANE [Suspect]
     Indication: ACNE CYSTIC
     Route: 048
     Dates: start: 20131001, end: 20131212
  2. PROZAC [Concomitant]
     Indication: DEPRESSION
     Route: 065

REACTIONS (2)
  - Anxiety [Unknown]
  - Treatment noncompliance [Unknown]
